FAERS Safety Report 17141513 (Version 1)
Quarter: 2019Q4

REPORT INFORMATION
  Report Type: Spontaneous
  Country: US (occurrence: US)
  Receive Date: 20191211
  Receipt Date: 20191211
  Transmission Date: 20200122
  Serious: No
  Sender: FDA-Public Use
  Company Number: US-009507513-1912USA005103

PATIENT
  Age: 19 Year
  Sex: Female
  Weight: 65.76 kg

DRUGS (1)
  1. NEXPLANON [Suspect]
     Active Substance: ETONOGESTREL
     Indication: CONTRACEPTION
     Dosage: 1 DOSAGE FORM, 3 YEAR IMPLANT, IMPLANT IN LEFT ARM
     Route: 059
     Dates: start: 20180803

REACTIONS (3)
  - Implant site mass [Recovering/Resolving]
  - Implant site pain [Not Recovered/Not Resolved]
  - Implant site hyperaesthesia [Not Recovered/Not Resolved]

NARRATIVE: CASE EVENT DATE: 2019
